FAERS Safety Report 9350115 (Version 1)
Quarter: 2013Q2

REPORT INFORMATION
  Report Type: Spontaneous
  Country: US (occurrence: US)
  Receive Date: 20130616
  Receipt Date: 20130616
  Transmission Date: 20140414
  Serious: Yes (Hospitalization)
  Sender: FDA-Public Use
  Company Number: US-009507513-1306USA003920

PATIENT
  Age: 52 Year
  Sex: Female

DRUGS (2)
  1. SAPHRIS [Suspect]
     Indication: BIPOLAR DISORDER
     Dosage: 5 MG, ONCE DAILY
     Route: 060
  2. ZOCOR [Concomitant]
     Route: 048

REACTIONS (6)
  - Myalgia [Recovering/Resolving]
  - Chest pain [Recovering/Resolving]
  - Musculoskeletal stiffness [Recovering/Resolving]
  - Movement disorder [Recovering/Resolving]
  - Underdose [Unknown]
  - Inappropriate schedule of drug administration [Unknown]
